FAERS Safety Report 5234243-4 (Version None)
Quarter: 2007Q1

REPORT INFORMATION
  Report Type: 
  Country: None (occurrence: None)
  Receive Date: 20070209
  Receipt Date: 20070126
  Transmission Date: 20070707
  Serious: Yes (Hospitalization)
  Sender: FDA-Public Use
  Company Number: PHHO2007US01174

PATIENT
  Age: 59 Year
  Sex: Female

DRUGS (3)
  1. FEMARA [Suspect]
     Indication: BREAST CANCER METASTATIC
     Dosage: 2.5 MG, QD
     Route: 048
     Dates: start: 20060801
  2. ADVAIR DISKUS 100/50 [Concomitant]
  3. FLUTICASONE W/SALMETEROL [Concomitant]

REACTIONS (9)
  - ATELECTASIS [None]
  - DRUG INEFFECTIVE [None]
  - DYSPNOEA [None]
  - LIFE SUPPORT [None]
  - LUNG DISORDER [None]
  - MALIGNANT NEOPLASM PROGRESSION [None]
  - OEDEMA PERIPHERAL [None]
  - PLEURAL EFFUSION [None]
  - WHEEZING [None]
